FAERS Safety Report 8187386-X (Version None)
Quarter: 2012Q1

REPORT INFORMATION
  Report Type: 
  Country: None (occurrence: None)
  Receive Date: 20120306
  Receipt Date: 20120301
  Transmission Date: 20120608
  Serious: Yes (Hospitalization, Other)
  Sender: FDA-Public Use
  Company Number: US-BAYER-2011-052514

PATIENT
  Age: 37 Year
  Sex: Female
  Weight: 61.678 kg

DRUGS (11)
  1. PROMETHAZINE [Concomitant]
  2. OXYCODONE HCL [Concomitant]
  3. RITALIN [Concomitant]
  4. AMOXICILLIN [Concomitant]
  5. HYDROCODONE BITARTRATE AND ACETAMINOPHEN [Concomitant]
  6. FLONASE [Concomitant]
  7. DROSPIRENONE AND ETHINYL ESTRADIOL [Suspect]
     Dosage: UNK
     Dates: start: 20110913
  8. LEVAQUIN [Concomitant]
     Dosage: UNK
     Dates: start: 20090422
  9. YAZ [Suspect]
     Indication: PREMENSTRUAL SYNDROME
     Dosage: UNK
     Dates: start: 20080701, end: 20100910
  10. FLUTICASONE PROPIONATE [Concomitant]
  11. TRAZODONE HCL [Concomitant]

REACTIONS (7)
  - CHOLELITHIASIS [None]
  - GALLBLADDER DISORDER [None]
  - CHOLECYSTITIS CHRONIC [None]
  - INJURY [None]
  - BILIARY COLIC [None]
  - PAIN [None]
  - ABDOMINAL PAIN [None]
